FAERS Safety Report 5475374-3 (Version None)
Quarter: 2007Q4

REPORT INFORMATION
  Report Type: 
  Country: None (occurrence: None)
  Receive Date: 20071003
  Receipt Date: 20070919
  Transmission Date: 20080405
  Serious: Yes (Hospitalization)
  Sender: FDA-Public Use
  Company Number: US-JNJFOC-20070904675

PATIENT
  Age: 10 Month
  Sex: Male

DRUGS (1)
  1. INFLIXIMAB [Suspect]
     Indication: JUVENILE ARTHRITIS
     Dosage: INFUSED 4, 7 AND 9 DAYS AFTER BLOOD TRANSFUSION
     Route: 042

REACTIONS (1)
  - TRANSFUSION REACTION [None]
